FAERS Safety Report 7797716 (Version 7)
Quarter: 2012Q4

REPORT INFORMATION
  Report Type: 
  Country: US (occurrence: US)
  Receive Date: 20101130
  Receipt Date: 20120910
  Transmission Date: 20130627
  Serious: Yes (Hospitalization, Other)
  Sender: FDA-Public Use
  Company Number: US-009507513-2010SP028437

PATIENT

DRUGS (2)
  1. NUVARING [Suspect]
     Indication: CONTRACEPTION
     Dates: start: 2003, end: 200611
  2. NUVARING [Suspect]
     Indication: VAGINAL HAEMORRHAGE

REACTIONS (20)
  - Cervical dysplasia [Not Recovered/Not Resolved]
  - Pulmonary embolism [Unknown]
  - Deep vein thrombosis [Unknown]
  - Gonorrhoea [Unknown]
  - Arthralgia [Unknown]
  - Contusion [Unknown]
  - Paraesthesia [Unknown]
  - Mouth ulceration [Unknown]
  - Road traffic accident [Unknown]
  - Chlamydial infection [Not Recovered/Not Resolved]
  - Back pain [Not Recovered/Not Resolved]
  - Acne [Unknown]
  - Hypoaesthesia [Unknown]
  - Cystitis [Unknown]
  - Urinary tract infection [Unknown]
  - Headache [Unknown]
  - Chest pain [Unknown]
  - Insomnia [Unknown]
  - Rhinitis allergic [Unknown]
  - Sinusitis [Unknown]
